FAERS Safety Report 7378002-5 (Version None)
Quarter: 2011Q1

REPORT INFORMATION
  Report Type: 
  Country: None (occurrence: None)
  Receive Date: 20110328
  Receipt Date: 20110321
  Transmission Date: 20110831
  Serious: Yes (Hospitalization)
  Sender: FDA-Public Use
  Company Number: IE-PFIZER INC-2011031946

PATIENT
  Age: 4 Week
  Sex: Female

DRUGS (1)
  1. DIFLUCAN [Suspect]
     Indication: FUNGAL INFECTION
     Dosage: 150 MG, SINGLE
     Route: 063
     Dates: start: 20110131, end: 20110131

REACTIONS (2)
  - DRUG EXPOSURE VIA BREAST MILK [None]
  - BRONCHIOLITIS [None]
